FAERS Safety Report 9769408 (Version 1)
Quarter: 2013Q4

REPORT INFORMATION
  Report Type: Spontaneous
  Country: US (occurrence: None)
  Receive Date: 20131217
  Receipt Date: 20131217
  Transmission Date: 20140711
  Serious: Yes (Other)
  Sender: FDA-Public Use
  Company Number: None

PATIENT
  Age: 50 Year
  Sex: Female
  Weight: 58.06 kg

DRUGS (1)
  1. GLEEVEC [Suspect]
     Indication: CHRONIC MYELOID LEUKAEMIA
     Route: 048
     Dates: start: 20081120, end: 20130925

REACTIONS (13)
  - Myopathy [None]
  - Myalgia [None]
  - Bone pain [None]
  - Fatigue [None]
  - Nausea [None]
  - Night sweats [None]
  - Abdominal pain upper [None]
  - Eating disorder [None]
  - Hypotension [None]
  - Syncope [None]
  - Asthenia [None]
  - Muscle twitching [None]
  - Muscle atrophy [None]
